FAERS Safety Report 19282638 (Version 1)
Quarter: 2021Q2

REPORT INFORMATION
  Report Type: Spontaneous
  Country: US (occurrence: US)
  Receive Date: 20210521
  Receipt Date: 20210521
  Transmission Date: 20210717
  Serious: No
  Sender: FDA-Public Use
  Company Number: US-ACCORD-196870

PATIENT
  Sex: Female

DRUGS (1)
  1. QUETIAPINE. [Suspect]
     Active Substance: QUETIAPINE
     Indication: SLEEP DISORDER
     Dosage: 1?2 TABLETS DAILY
     Route: 048
     Dates: start: 20200629, end: 20200717

REACTIONS (8)
  - Pharyngeal swelling [Unknown]
  - Headache [Unknown]
  - Sinusitis [Unknown]
  - Fatigue [Unknown]
  - Off label use [Unknown]
  - Blister [Unknown]
  - Dyspnoea [Unknown]
  - Oropharyngeal pain [Unknown]
